FAERS Safety Report 18834240 (Version 1)
Quarter: 2021Q1

REPORT INFORMATION
  Report Type: Report from Study
  Country: US (occurrence: US)
  Receive Date: 20210203
  Receipt Date: 20210203
  Transmission Date: 20210419
  Serious: Yes (Hospitalization, Other)
  Sender: FDA-Public Use
  Company Number: NVSC2021US018860

PATIENT
  Sex: Male

DRUGS (3)
  1. ENTRESTO [Suspect]
     Active Substance: SACUBITRIL\VALSARTAN
     Indication: PRODUCT USED FOR UNKNOWN INDICATION
     Dosage: 1 DF (49/51 MG), BID
     Route: 048
  2. WARFARIN [Concomitant]
     Active Substance: WARFARIN
     Indication: PRODUCT USED FOR UNKNOWN INDICATION
     Dosage: UNK
     Route: 065
  3. PLAVIX [Concomitant]
     Active Substance: CLOPIDOGREL BISULFATE
     Indication: PRODUCT USED FOR UNKNOWN INDICATION
     Dosage: UNK
     Route: 065

REACTIONS (19)
  - Visual impairment [Unknown]
  - Cough [Unknown]
  - Dizziness postural [Unknown]
  - Malignant melanoma [Unknown]
  - Ejection fraction decreased [Unknown]
  - Cardiac ventricular thrombosis [Unknown]
  - Fluid retention [Unknown]
  - Fall [Unknown]
  - Localised infection [Unknown]
  - Yawning [Unknown]
  - SARS-CoV-2 test positive [Unknown]
  - Oedema [Unknown]
  - Weight increased [Unknown]
  - Renal disorder [Unknown]
  - Blood pressure decreased [Unknown]
  - Lymphoma [Unknown]
  - Malaise [Unknown]
  - Post procedural infection [Unknown]
  - Dyspnoea [Unknown]
